FAERS Safety Report 7906442 (Version 3)
Quarter: 2013Q2

REPORT INFORMATION
  Report Type: Report from Study
  Country: CA (occurrence: CA)
  Receive Date: 20110420
  Receipt Date: 20130424
  Transmission Date: 20140414
  Serious: Yes (Death, Hospitalization, Other)
  Sender: FDA-Public Use
  Company Number: PHHY2011CA24264

PATIENT
  Age: 50 Year
  Sex: Female

DRUGS (4)
  1. ZOMETA [Suspect]
     Indication: PLASMA CELL MYELOMA
     Dosage: 4 MG, EVERY FOUR WEEKS
     Route: 042
     Dates: start: 20110210
  2. ZOMETA [Suspect]
     Dosage: 4 MG, ONCE A MONTH
     Route: 042
     Dates: end: 20130325
  3. STEROID [Concomitant]
     Route: 042
  4. ANTIBIOTICS [Concomitant]
     Route: 048

REACTIONS (25)
  - Death [Fatal]
  - Infection [Unknown]
  - Bone pain [Unknown]
  - Plasma cell myeloma [Unknown]
  - Malignant neoplasm progression [Unknown]
  - Blood pressure increased [Unknown]
  - Blood pressure decreased [Unknown]
  - Renal failure [Unknown]
  - Renal impairment [Unknown]
  - Blood creatinine increased [Unknown]
  - Upper respiratory tract infection [Unknown]
  - Cough [Unknown]
  - Platelet count increased [Unknown]
  - Blood chloride increased [Unknown]
  - Protein total decreased [Unknown]
  - Red cell distribution width increased [Unknown]
  - Contusion [Unknown]
  - Nasopharyngitis [Unknown]
  - Abdominal discomfort [Unknown]
  - Pyrexia [Unknown]
  - Musculoskeletal discomfort [Recovered/Resolved]
  - Lymphocyte count decreased [Unknown]
  - Fatigue [Unknown]
  - Malaise [Unknown]
  - Influenza like illness [Unknown]
